FAERS Safety Report 6135583-7 (Version None)
Quarter: 2009Q1

REPORT INFORMATION
  Report Type: 
  Country: None (occurrence: None)
  Receive Date: 20090327
  Receipt Date: 20090325
  Transmission Date: 20090719
  Serious: Yes (Other)
  Sender: FDA-Public Use
  Company Number: BR-ABBOTT-09P-020-0564591-00

PATIENT
  Sex: Female
  Weight: 64 kg

DRUGS (5)
  1. DEPAKENE [Suspect]
     Indication: CONVULSION
     Route: 048
     Dates: start: 20090305
  2. DEPAKENE [Suspect]
     Indication: EPILEPSY
  3. PHENOBARBITAL (GARDENAL) [Concomitant]
     Indication: CONVULSION
     Route: 048
  4. DORICO [Concomitant]
     Indication: HEADACHE
     Route: 048
  5. CARBAMAZEPINE [Concomitant]
     Indication: CONVULSION
     Route: 048

REACTIONS (5)
  - ABDOMINAL DISTENSION [None]
  - ABDOMINAL PAIN UPPER [None]
  - CONVULSION [None]
  - HEADACHE [None]
  - SYNCOPE [None]
